FAERS Safety Report 6507723-9 (Version None)
Quarter: 2009Q4

REPORT INFORMATION
  Report Type: 
  Country: None (occurrence: None)
  Receive Date: 20091221
  Receipt Date: 20091210
  Transmission Date: 20100525
  Serious: Yes (Hospitalization)
  Sender: FDA-Public Use
  Company Number: FR-WYE-H12651209

PATIENT
  Age: 89 Year
  Sex: Male

DRUGS (9)
  1. CORDARONE [Suspect]
     Indication: ATRIAL FIBRILLATION
     Dosage: 200 MG
     Route: 048
  2. BACTRIM DS [Interacting]
     Indication: ESCHERICHIA SEPSIS
     Route: 048
     Dates: end: 20090117
  3. COUMADIN [Interacting]
     Indication: PULMONARY EMBOLISM
     Dosage: NOT PROVIDED
     Route: 048
     Dates: end: 20090117
  4. GUAIFENESIN/TERBUTALINE SULFATE [Concomitant]
  5. LANTUS [Concomitant]
     Indication: TYPE 1 DIABETES MELLITUS
     Dosage: NOT PROVIDED
  6. NOVORAPID [Concomitant]
     Indication: TYPE 1 DIABETES MELLITUS
  7. ATROVENT [Concomitant]
     Dosage: NOT PROVIDED
     Dates: end: 20090117
  8. FLAGYL [Interacting]
     Indication: ESCHERICHIA SEPSIS
     Route: 048
     Dates: end: 20090117
  9. LASILIX [Concomitant]
     Indication: RENAL FAILURE CHRONIC
     Dosage: 40 MG

REACTIONS (4)
  - DRUG INTERACTION [None]
  - INTERNATIONAL NORMALISED RATIO INCREASED [None]
  - MELAENA [None]
  - OESOPHAGITIS ULCERATIVE [None]
